FAERS Safety Report 14834752 (Version 2)
Quarter: 2020Q3

REPORT INFORMATION
  Report Type: Spontaneous
  Country: CA (occurrence: CA)
  Receive Date: 20180501
  Receipt Date: 20200331
  Transmission Date: 20201104
  Serious: Yes (Congenital Anomaly)
  Sender: FDA-Public Use
  Company Number: CA-ALLERGAN-1823190US

PATIENT
  Sex: Female
  Weight: 3.16 kg

DRUGS (10)
  1. OMEPRAZOLE. [Suspect]
     Active Substance: OMEPRAZOLE
     Indication: EXPOSURE DURING PREGNANCY
     Dosage: UNK
     Route: 065
  2. CYCLOBENZAPRINE. [Suspect]
     Active Substance: CYCLOBENZAPRINE
     Indication: EXPOSURE DURING PREGNANCY
     Dosage: UNK
     Route: 064
  3. LEVOTHYROXINE. [Suspect]
     Active Substance: LEVOTHYROXINE
     Indication: EXPOSURE DURING PREGNANCY
     Dosage: UNK
     Route: 064
  4. DOMPERIDONE [Suspect]
     Active Substance: DOMPERIDONE
     Indication: EXPOSURE DURING PREGNANCY
     Dosage: UNK
     Route: 048
  5. DULOXETINE. [Suspect]
     Active Substance: DULOXETINE
     Indication: EXPOSURE DURING PREGNANCY
     Dosage: UNK
     Route: 064
  6. INSULIN [Suspect]
     Active Substance: INSULIN NOS
     Indication: EXPOSURE DURING PREGNANCY
     Dosage: UNK
     Route: 064
  7. FERROUS SULFATE. [Suspect]
     Active Substance: FERROUS SULFATE
     Indication: EXPOSURE DURING PREGNANCY
     Dosage: UNK
     Route: 064
  8. DOCUSATE SODIUM. [Suspect]
     Active Substance: DOCUSATE SODIUM
     Indication: EXPOSURE DURING PREGNANCY
     Dosage: UNK
     Route: 064
  9. URSODEOXYCHOLIC ACID UNK [Suspect]
     Active Substance: URSODIOL
     Indication: EXPOSURE DURING PREGNANCY
     Dosage: UNK
     Route: 064
  10. METHYLPHENIDATE. [Suspect]
     Active Substance: METHYLPHENIDATE
     Indication: EXPOSURE DURING PREGNANCY
     Dosage: UNK
     Route: 064

REACTIONS (2)
  - Pulmonary malformation [Unknown]
  - Pregnancy [Unknown]
